FAERS Safety Report 24637915 (Version 2)
Quarter: 2024Q4

REPORT INFORMATION
  Report Type: Spontaneous
  Country: GB (occurrence: GB)
  Receive Date: 20241119
  Receipt Date: 20241202
  Transmission Date: 20250115
  Serious: Yes (Hospitalization)
  Sender: VERTEX
  Company Number: GB-VERTEX PHARMACEUTICALS-2024-017912

PATIENT
  Age: 36 Year
  Sex: Female

DRUGS (36)
  1. ELEXACAFTOR\IVACAFTOR\TEZACAFTOR [Suspect]
     Active Substance: ELEXACAFTOR\IVACAFTOR\TEZACAFTOR
     Indication: Cystic fibrosis
     Dosage: TWO TABS IN AM
     Route: 048
     Dates: start: 20201001, end: 202011
  2. ELEXACAFTOR\IVACAFTOR\TEZACAFTOR [Suspect]
     Active Substance: ELEXACAFTOR\IVACAFTOR\TEZACAFTOR
     Dosage: 1 TABLET DAILY
     Route: 048
     Dates: end: 2022
  3. ELEXACAFTOR\IVACAFTOR\TEZACAFTOR [Suspect]
     Active Substance: ELEXACAFTOR\IVACAFTOR\TEZACAFTOR
     Dosage: ONE TAB ON ALTERNATE DAYS
     Route: 048
     Dates: start: 20230523
  4. ELEXACAFTOR\IVACAFTOR\TEZACAFTOR [Suspect]
     Active Substance: ELEXACAFTOR\IVACAFTOR\TEZACAFTOR
     Dosage: UNKNOWN DOSAGE REGIMEN
     Route: 048
     Dates: start: 202306, end: 202307
  5. ELEXACAFTOR\IVACAFTOR\TEZACAFTOR [Suspect]
     Active Substance: ELEXACAFTOR\IVACAFTOR\TEZACAFTOR
     Dosage: SPORADICALLY; 2 TABS IN 14 DAYS
     Route: 048
  6. ELEXACAFTOR\IVACAFTOR\TEZACAFTOR [Suspect]
     Active Substance: ELEXACAFTOR\IVACAFTOR\TEZACAFTOR
     Dosage: TAKING 4 TABS IN A WEEK, SOME WEEKS (AT A DOSE OF 1 TAB EACH TIME)
     Route: 048
  7. KALYDECO [Suspect]
     Active Substance: IVACAFTOR
     Indication: Cystic fibrosis
     Dosage: ONE TAB IN THE PM
     Route: 048
     Dates: start: 20201001
  8. CALCIUM CARBONATE\CHOLECALCIFEROL [Concomitant]
     Active Substance: CALCIUM CARBONATE\CHOLECALCIFEROL
     Dosage: UNK, BID
  9. AZITHROMYCIN [Concomitant]
     Active Substance: AZITHROMYCIN
     Dosage: ON MONDAY, WEDNESDAY AND FRIDAY
  10. CLONAZEPAM [Concomitant]
     Active Substance: CLONAZEPAM
     Indication: Myalgia
     Dosage: 8 HOURLY IF NEEDED
  11. CLONAZEPAM [Concomitant]
     Active Substance: CLONAZEPAM
     Indication: Muscle spasms
  12. COLOMYCIN [Concomitant]
     Dosage: 2 MU TWICE DAILY ON ALTERNATE MONTHS
     Route: 055
  13. CREON [Concomitant]
     Active Substance: PANCRELIPASE AMYLASE\PANCRELIPASE LIPASE\PANCRELIPASE PROTEASE
     Dosage: 2-3 WITH SNACKS, 5-8 WITH MEALS
  14. DIAZEPAM [Concomitant]
     Active Substance: DIAZEPAM
     Dosage: TWICE DAILY
  15. PULMOZYME [Concomitant]
     Active Substance: DORNASE ALFA
     Dosage: ONCE DAILY
     Route: 055
  16. FERROUS SULFATE [Concomitant]
     Active Substance: FERROUS SULFATE
     Dosage: ON ALTERNATE DAYS
  17. FEXOFENADINE [Concomitant]
     Active Substance: FEXOFENADINE HYDROCHLORIDE
     Dosage: ONCE DAILY
  18. INSULIN NOS [Concomitant]
     Active Substance: INSULIN NOS
     Dosage: 8-10 UNITS WITH MEAL
  19. INSULIN NOS [Concomitant]
     Active Substance: INSULIN NOS
     Dosage: 8 UNIT AT NIGHT WITH FEED
  20. FLUTICASONE FUROATE\SALMETEROL XINAFOATE [Concomitant]
     Active Substance: FLUTICASONE FUROATE\SALMETEROL XINAFOATE
     Dosage: 1 PUFF TWICE
  21. HYDROXYCHLOROQUINE [Concomitant]
     Active Substance: HYDROXYCHLOROQUINE
     Dosage: ONCE DAILY
  22. LACTULOSE [Concomitant]
     Active Substance: LACTULOSE
     Dosage: AS REQUIRED
  23. LIDOCAINE [Concomitant]
     Active Substance: LIDOCAINE
     Dosage: 2 PATCHES DAILY
  24. MORPHINE SULFATE [Concomitant]
     Active Substance: MORPHINE SULFATE
     Dosage: TWICE DAILY
  25. MORPHINE SULFATE [Concomitant]
     Active Substance: MORPHINE SULFATE
     Indication: Pain
     Dosage: 10 MILLIGRAM, AS REQUIRED
  26. NORTRIPTYLINE [Concomitant]
     Active Substance: NORTRIPTYLINE
     Dosage: AT NIGHT
  27. OMEPRAZOLE [Concomitant]
     Active Substance: OMEPRAZOLE
     Dosage: ONCE DAILY
  28. PARAVIT CF [Concomitant]
     Dosage: 2 CAPSULES ONCE DAILY
  29. PREGABALIN [Concomitant]
     Active Substance: PREGABALIN
     Dosage: TWICE DAILY
  30. ALBUTEROL [Concomitant]
     Active Substance: ALBUTEROL
     Dosage: 2 PUFFS AS REQUIRED
  31. ALBUTEROL [Concomitant]
     Active Substance: ALBUTEROL
     Dosage: 5MG AS REQUIRED 3 HOURLY
     Route: 055
  32. PREDNISOLONE [Concomitant]
     Active Substance: PREDNISOLONE
     Indication: Infective pulmonary exacerbation of cystic fibrosis
     Dosage: 10 MG IN THE AM
  33. PREDNISOLONE [Concomitant]
     Active Substance: PREDNISOLONE
     Dosage: 40 MG, QD
  34. SODIUM CHLORIDE [Concomitant]
     Active Substance: SODIUM CHLORIDE
     Dosage: 4 ML TWICE DAILY
  35. TIOTROPIUM [Concomitant]
     Active Substance: TIOTROPIUM
     Dosage: ONCE DAILY
  36. TOBRAMYCIN [Concomitant]
     Active Substance: TOBRAMYCIN\TOBRAMYCIN SULFATE
     Dosage: TWICE DAILY ON ALTERNATE MONTHS
     Route: 055

REACTIONS (1)
  - Infective pulmonary exacerbation of cystic fibrosis [Recovered/Resolved]

NARRATIVE: CASE EVENT DATE: 20240716
